FAERS Safety Report 4705133-8 (Version None)
Quarter: 2005Q3

REPORT INFORMATION
  Report Type: 
  Country: None (occurrence: None)
  Receive Date: 20050701
  Receipt Date: 20040903
  Transmission Date: 20060218
  Serious: Yes (Disabling)
  Sender: FDA-Public Use
  Company Number: PHHO2004JP12321

PATIENT
  Age: 22 Year
  Sex: Male
  Weight: 61 kg

DRUGS (8)
  1. CYCLOSPORINE [Suspect]
     Indication: DERMATITIS ATOPIC
     Dosage: NO TREATMENT
     Dates: start: 20040903
  2. CYCLOSPORINE [Suspect]
     Dosage: 180 MG, BID
     Route: 048
     Dates: start: 20040611, end: 20040902
  3. ALLELOCK [Concomitant]
  4. PROTOPIC [Concomitant]
  5. NERISONA [Concomitant]
  6. KERATINAMIN [Concomitant]
  7. RINDERON -V [Concomitant]
  8. ISODINE [Concomitant]

REACTIONS (6)
  - EYE HAEMORRHAGE [None]
  - MACULAR OEDEMA [None]
  - RETINAL HAEMORRHAGE [None]
  - RETINAL VEIN OCCLUSION [None]
  - VISION BLURRED [None]
  - VISUAL ACUITY REDUCED [None]
